FAERS Safety Report 10790356 (Version 2)
Quarter: 2015Q4

REPORT INFORMATION
  Report Type: Spontaneous
  Country: JP (occurrence: JP)
  Receive Date: 20150212
  Receipt Date: 20151118
  Transmission Date: 20160304
  Serious: Yes (Other)
  Sender: FDA-Public Use
  Company Number: JP-BRISTOL-MYERS SQUIBB COMPANY-BMS-2015-007551

PATIENT
  Age: 83 Year
  Sex: Female

DRUGS (6)
  1. MIRTAZAPINE. [Suspect]
     Active Substance: MIRTAZAPINE
     Indication: DEPRESSION
     Dosage: 15 MG, QD
     Route: 048
  2. CHLORPROMAZINE HYDROCHLORIDE. [Suspect]
     Active Substance: CHLORPROMAZINE HYDROCHLORIDE
     Indication: INSOMNIA
     Route: 048
  3. RAMELTEON [Suspect]
     Active Substance: RAMELTEON
     Indication: INSOMNIA
     Dosage: 8 MG, QD
     Route: 048
  4. RISPERDAL [Concomitant]
     Active Substance: RISPERIDONE
     Indication: INSOMNIA
     Dosage: UNK
     Route: 065
  5. ABILIFY [Suspect]
     Active Substance: ARIPIPRAZOLE
     Indication: DEPRESSION
     Dosage: 3 MG, QD
     Route: 048
  6. SUVOREXANT. [Suspect]
     Active Substance: SUVOREXANT
     Indication: PRODUCT USED FOR UNKNOWN INDICATION
     Route: 048

REACTIONS (1)
  - Somnolence [Not Recovered/Not Resolved]
